FAERS Safety Report 4638003-4 (Version None)
Quarter: 2005Q2

REPORT INFORMATION
  Report Type: 
  Country: None (occurrence: None)
  Receive Date: 20050415
  Receipt Date: 20050411
  Transmission Date: 20051028
  Serious: Yes (Hospitalization)
  Sender: FDA-Public Use
  Company Number: DEWYE575111APR05

PATIENT
  Age: 26 Year
  Sex: Female

DRUGS (5)
  1. VENLAFAXINE HCL [Suspect]
     Dosage: 8 TABLETS 150MG EACH (OVERDOSE AMOUNT 1200MG) ORAL
     Route: 048
     Dates: start: 20050410, end: 20050410
  2. DOMINAL (PROTHIPENDYL HYDROCHLORIDE, , 0) [Suspect]
     Dosage: 6 TABLETS 40MG EACH (OVERDOSE AMOUNT 240MG) ORAL
     Route: 048
     Dates: start: 20050410, end: 20050410
  3. ACETAMINOPHEN [Suspect]
     Dosage: 30 TABLETS 500MG EACH (OVERDOSE AMOUNT 15000MG) ORAL
     Route: 048
     Dates: start: 20050410, end: 20050410
  4. TAXILAN (PERAZINE, , 0) [Suspect]
     Dosage: 20 TABLETS 25MG EACH (OVERDOSE AMOUNT 500MG) ORAL
     Route: 048
     Dates: start: 20050410, end: 20050410
  5. VALIUM [Suspect]
     Dosage: 3 TABLETS 10MG EACH (OVERDOSE AMOUNT 30MG) ORAL
     Route: 048
     Dates: start: 20050410, end: 20050410

REACTIONS (2)
  - FATIGUE [None]
  - INTENTIONAL MISUSE [None]
